FAERS Safety Report 15230992 (Version 2)
Quarter: 2019Q3

REPORT INFORMATION
  Report Type: Spontaneous
  Country: US (occurrence: US)
  Receive Date: 20180802
  Receipt Date: 20190805
  Transmission Date: 20191004
  Serious: Yes (Other)
  Sender: FDA-Public Use
  Company Number: US-ACCORD-063610

PATIENT
  Age: 69 Year
  Sex: Female
  Weight: 83.91 kg

DRUGS (24)
  1. NEOSAR [Suspect]
     Active Substance: CYCLOPHOSPHAMIDE
     Indication: BREAST CANCER
     Dosage: 990 MG (AT 500 MG/M2)
     Route: 042
     Dates: start: 20130411, end: 20130725
  2. PRAVASTATIN. [Concomitant]
     Active Substance: PRAVASTATIN
     Dosage: STRENGTH: 40 MG?1 (40 MG) TABLET ORAL DALLY
     Route: 048
  3. GLUCOSAMINE [Concomitant]
     Active Substance: GLUCOSAMINE
  4. FAMOTIDINE. [Concomitant]
     Active Substance: FAMOTIDINE
     Dosage: 20 MG (OF 10 MG/ML)
     Route: 042
     Dates: start: 20130729, end: 20130802
  5. ZOLOFT [Concomitant]
     Active Substance: SERTRALINE HYDROCHLORIDE
     Dosage: STRENGTH: 100 MG?1 (100 MG) TABLET ORAL DALLY
     Route: 048
  6. RANITIDINE. [Concomitant]
     Active Substance: RANITIDINE
  7. FOSAPREPITANT DIMEGLUMINE. [Concomitant]
     Active Substance: FOSAPREPITANT DIMEGLUMINE
     Route: 042
     Dates: start: 20130411, end: 20130725
  8. LORATADINE/PSEUDOEPHEDRINE [Concomitant]
     Dosage: STRENGTH: 5-120 MG?1 (5-120 MG) TABLET SR 12 HR?ORAL Q 12 HOURS
     Route: 048
     Dates: start: 20130613, end: 20131205
  9. ONDANSETRON [Concomitant]
     Active Substance: ONDANSETRON
     Dosage: STRENGTH: 8 MG?8 MG TABLET ORAL Q 8 HOURS PRN
     Route: 048
     Dates: start: 20130410, end: 20131205
  10. DEXAMETHASONE. [Concomitant]
     Active Substance: DEXAMETHASONE
     Dosage: STRENGTH: 4 MG
     Route: 048
     Dates: start: 20130410, end: 20131205
  11. SODIUM CHLORIDE. [Concomitant]
     Active Substance: SODIUM CHLORIDE
     Dosage: 1,000 ML (OF 0.9 %) LNTRAVENOUS DALLY
     Route: 042
     Dates: start: 20130411, end: 20130802
  12. DOCETAXEL ACCORD [Suspect]
     Active Substance: DOCETAXEL
     Indication: BREAST CANCER
     Dosage: 150 MG (AT 75 MG/M2)
     Route: 042
     Dates: start: 20130411, end: 20130725
  13. DOXORUBICIN [Suspect]
     Active Substance: DOXORUBICIN
     Indication: BREAST CANCER
     Dosage: 99 MG (AT 50 MG/M2)
     Route: 042
     Dates: start: 20130411, end: 20130725
  14. EMLA [Concomitant]
     Active Substance: LIDOCAINE\PRILOCAINE
     Dosage: STRENGTH: 2.5-2.5%
     Route: 061
     Dates: start: 20130410, end: 20131205
  15. CALCIUM CARBONATE. [Concomitant]
     Active Substance: CALCIUM CARBONATE
     Dosage: STRENGTH: 1000 MG?1 (1000 MG) TABLET ORAL DAILY
     Route: 048
  16. FISH OIL [Concomitant]
     Active Substance: FISH OIL
     Dosage: STRENGTH: 1000 MG?1 (1000 MG) CAPSULE ORAL DALLY
     Route: 048
  17. OMEPRAZOLE. [Concomitant]
     Active Substance: OMEPRAZOLE
     Dosage: STRENGTH: 20 MG?1 (20 MG) CAPSULE DELAYED RELEASE?OROL DAILY
     Route: 048
  18. PEGFILGRASTIM [Concomitant]
     Active Substance: PEGFILGRASTIM
     Route: 058
     Dates: start: 20130412, end: 20130726
  19. ACETYLSALICYLIC ACID [Concomitant]
     Active Substance: ASPIRIN
     Dosage: STRENGTH: 81 MG?1 (81 MG) TABLET ORAL DALLY
     Route: 048
  20. LORAZEPAM. [Concomitant]
     Active Substance: LORAZEPAM
     Dosage: STRENGTH: 1 MG ?1 MG TABLET SUBLLNGUAL Q 4 HOURS PRN
     Route: 060
     Dates: start: 20130411, end: 20131205
  21. OXYCODONE [Concomitant]
     Active Substance: OXYCODONE
     Dosage: STRENGTH: 5 MG ?1 TABLET ORAL Q 4 HOURS PRN
     Route: 048
     Dates: start: 20130418, end: 20131205
  22. PALONOSETRON. [Concomitant]
     Active Substance: PALONOSETRON HYDROCHLORIDE
     Route: 042
     Dates: start: 20130411, end: 20130725
  23. HYDROCHLOROTHIAZIDE/LISINOPRIL [Concomitant]
     Dosage: STRENGTH: 20/25 MG?1 (20/25 MG) TABLET ORAL DALLY
     Route: 048
  24. PROCHLORPERAZINE. [Concomitant]
     Active Substance: PROCHLORPERAZINE
     Dosage: STRENGTH: 5 MG?1-2 TABLET ORAL Q 4 TO 6 HOURS PRN
     Route: 048
     Dates: start: 20130410, end: 20131205

REACTIONS (1)
  - Alopecia [Not Recovered/Not Resolved]

NARRATIVE: CASE EVENT DATE: 20140101
